FAERS Safety Report 10225448 (Version 1)
Quarter: 2014Q1

REPORT INFORMATION
  Report Type: Spontaneous
  Country: US (occurrence: None)
  Receive Date: 20140306
  Receipt Date: 20140306
  Transmission Date: 20141002
  Serious: Yes (Other)
  Sender: FDA-Public Use
  Company Number: 163-21880-13083642

PATIENT
  Age: 75 Year
  Sex: Male
  Weight: 99.8 kg

DRUGS (18)
  1. REVLIMID [Suspect]
     Indication: PLASMA CELL MYELOMA
     Route: 048
     Dates: start: 201001
  2. PROTONIX (SUSTAINED-RELEASE TABLET) [Concomitant]
  3. CHOLESTYRAMINE (COLESTYRAMINE) [Concomitant]
  4. POTASSIUM CL (POTASSIUM CHLORIDE) [Concomitant]
  5. CENTRUM SILVER (CENTRUM SILVER) [Concomitant]
  6. SIMVASTATIN (SIMVASTATIN) [Concomitant]
  7. HYDROXYCHLOROQUINE (HYDROXYCHLOROQUINE) [Concomitant]
  8. PROBENECID (PROBENECID) [Concomitant]
  9. VITAMIN B 12 (VITAMIN B 12) [Concomitant]
  10. COLCRYS (COLCHICINE) [Concomitant]
  11. LISINOPRIL (LISINOPRIL) [Concomitant]
  12. CYCLOBENZAPRINE (CYCLOBENZAPRINE) [Concomitant]
  13. FUROSEMIDE (FUROSEMIDE) [Concomitant]
  14. GABAPENTIN (GABAPENTIN) [Concomitant]
  15. ASPIRIN (ACETYLSALICYLIC ACID) [Concomitant]
  16. WARFARIN SODIUM (WARFARIN SODIUM) [Concomitant]
  17. LOMOTIL (LOMOTIL) [Concomitant]
  18. CALCIUM (CALCIUM) [Concomitant]

REACTIONS (4)
  - Blood calcium decreased [None]
  - Lactose intolerance [None]
  - Nasopharyngitis [None]
  - Diarrhoea [None]
